FAERS Safety Report 7777979-3 (Version None)
Quarter: 2011Q3

REPORT INFORMATION
  Report Type: 
  Country: None (occurrence: None)
  Receive Date: 20110926
  Receipt Date: 20110914
  Transmission Date: 20111222
  Serious: No
  Sender: FDA-Public Use
  Company Number: US-BIOGENIDEC-2011BI035374

PATIENT
  Age: 62 Year
  Sex: Female

DRUGS (2)
  1. AVONEX [Suspect]
     Indication: MULTIPLE SCLEROSIS
     Route: 030
     Dates: start: 20080501
  2. AMBIEN [Concomitant]
     Indication: INSOMNIA

REACTIONS (4)
  - NECK PAIN [None]
  - ORAL HERPES [None]
  - MUSCULOSKELETAL PAIN [None]
  - ARTHRITIS [None]
